FAERS Safety Report 24861873 (Version 1)
Quarter: 2025Q1

REPORT INFORMATION
  Report Type: Spontaneous
  Country: US (occurrence: US)
  Receive Date: 20250120
  Receipt Date: 20250120
  Transmission Date: 20250409
  Serious: Yes (Other)
  Sender: SANDOZ
  Company Number: US-SANDOZ-SDZ2023US077282

PATIENT
  Age: 71 Year
  Sex: Female

DRUGS (6)
  1. ENTRESTO [Suspect]
     Active Substance: SACUBITRIL\VALSARTAN
     Indication: Cardiac failure
     Dosage: HELD ENTRESTO FOR A FEW DAYS THEN BACK TO TWICE A DAY
     Route: 048
     Dates: start: 20231025
  2. ENTRESTO [Suspect]
     Active Substance: SACUBITRIL\VALSARTAN
     Dosage: HELD ENTRESTO FOR A FEW DAYS THEN BACK TO TWICE A DAY
     Route: 048
     Dates: start: 20231025
  3. FARXIGA [Suspect]
     Active Substance: DAPAGLIFLOZIN PROPANEDIOL
     Indication: Product used for unknown indication
     Route: 065
  4. JANUVIA [Suspect]
     Active Substance: SITAGLIPTIN PHOSPHATE
     Indication: Product used for unknown indication
     Route: 065
  5. METOPROLOL [Suspect]
     Active Substance: METOPROLOL
     Indication: Product used for unknown indication
     Route: 065
     Dates: start: 202310
  6. COUMADIN [Concomitant]
     Active Substance: WARFARIN SODIUM
     Indication: Anticoagulant therapy
     Route: 065

REACTIONS (11)
  - Rheumatoid arthritis [Unknown]
  - Vitreous haematoma [Recovering/Resolving]
  - Fall [Recovered/Resolved]
  - Blood potassium increased [Unknown]
  - Restless legs syndrome [Recovered/Resolved]
  - Condition aggravated [Recovered/Resolved]
  - Back pain [Unknown]
  - Head injury [Recovered/Resolved]
  - Insomnia [Unknown]
  - Weight increased [Unknown]
  - Fatigue [Recovering/Resolving]

NARRATIVE: CASE EVENT DATE: 20231001
